FAERS Safety Report 21358596 (Version 2)
Quarter: 2022Q4

REPORT INFORMATION
  Report Type: Spontaneous
  Country: US (occurrence: US)
  Receive Date: 20220921
  Receipt Date: 20221021
  Transmission Date: 20230112
  Serious: No
  Sender: FDA-Public Use
  Company Number: US-BRISTOL-MYERS SQUIBB COMPANY-2022-109358

PATIENT
  Age: 85 Year
  Sex: Female

DRUGS (2)
  1. REVLIMID [Suspect]
     Active Substance: LENALIDOMIDE
     Indication: Plasma cell myeloma
     Dosage: TAKE 1CAPSULE BY MOUTH 3 TIMES WEEKLY FOR 21 DAYS ON AND 7 DAYS OFF?BATCH NUMBER: A3651A, EXPIRATION
     Route: 048
     Dates: start: 20210513
  2. REVLIMID [Suspect]
     Active Substance: LENALIDOMIDE
     Indication: Osteoarthritis

REACTIONS (6)
  - Diarrhoea [Unknown]
  - Off label use [Unknown]
  - Insomnia [Unknown]
  - Fatigue [Unknown]
  - Dyspnoea [Unknown]
  - Muscle spasms [Unknown]
